FAERS Safety Report 24169114 (Version 1)
Quarter: 2024Q3

REPORT INFORMATION
  Report Type: Spontaneous
  Country: RU (occurrence: RU)
  Receive Date: 20240802
  Receipt Date: 20240802
  Transmission Date: 20241017
  Serious: Yes (Other)
  Sender: NOVARTIS
  Company Number: RU-002147023-NVSC2024RU154870

PATIENT
  Age: 51 Year
  Sex: Female
  Weight: 80 kg

DRUGS (2)
  1. TAFINLAR [Suspect]
     Active Substance: DABRAFENIB MESYLATE
     Indication: Malignant melanoma
     Dosage: 150 MG (2 TIMES A DAY)
     Route: 048
     Dates: start: 20230322, end: 20240713
  2. MEKINIST [Suspect]
     Active Substance: TRAMETINIB DIMETHYL SULFOXIDE
     Indication: Malignant melanoma
     Dosage: 2 MG (ONCE DAILY)
     Route: 048
     Dates: start: 20230322, end: 20240713

REACTIONS (6)
  - Swelling face [Recovered/Resolved]
  - Erythema [Recovered/Resolved]
  - Genital swelling [Recovered/Resolved]
  - Vulvovaginal erythema [Recovered/Resolved]
  - Anal pruritus [Recovered/Resolved]
  - Abdominal distension [Recovered/Resolved]

NARRATIVE: CASE EVENT DATE: 20240712
